FAERS Safety Report 12206801 (Version 1)
Quarter: 2016Q1

REPORT INFORMATION
  Report Type: Spontaneous
  Country: US (occurrence: US)
  Receive Date: 20160324
  Receipt Date: 20160324
  Transmission Date: 20160526
  Serious: No
  Sender: FDA-Public Use
  Company Number: US-009507513-1603USA010456

PATIENT
  Sex: Female

DRUGS (1)
  1. NEXPLANON [Suspect]
     Active Substance: ETONOGESTREL
     Indication: CONTRACEPTION
     Dosage: 1 ROD/ ONCE PER THREE YEARS
     Route: 059
     Dates: start: 2014

REACTIONS (3)
  - Suppressed lactation [Unknown]
  - Breast feeding [Unknown]
  - Product use issue [Unknown]

NARRATIVE: CASE EVENT DATE: 2014
